FAERS Safety Report 24201844 (Version 1)
Quarter: 2024Q3

REPORT INFORMATION
  Report Type: Spontaneous
  Country: CA (occurrence: CA)
  Receive Date: 20240812
  Receipt Date: 20240812
  Transmission Date: 20241017
  Serious: Yes (Life-Threatening, Hospitalization, Disabling, Other)
  Sender: BRISTOL MYERS SQUIBB
  Company Number: CA-BRISTOL-MYERS SQUIBB COMPANY-2024-126887

PATIENT
  Age: 44 Year
  Sex: Female
  Weight: 97 kg

DRUGS (206)
  1. ORENCIA [Suspect]
     Active Substance: ABATACEPT
     Indication: Rheumatoid arthritis
     Route: 058
  2. ORENCIA [Suspect]
     Active Substance: ABATACEPT
     Route: 058
  3. ORENCIA [Suspect]
     Active Substance: ABATACEPT
     Indication: Rheumatoid arthritis
     Route: 042
  4. ORENCIA [Suspect]
     Active Substance: ABATACEPT
     Route: 042
  5. ACETAMINOPHEN [Concomitant]
     Active Substance: ACETAMINOPHEN
     Indication: Rheumatoid arthritis
  6. ACETAMINOPHEN [Concomitant]
     Active Substance: ACETAMINOPHEN
     Route: 048
  7. ACETAMINOPHEN\CAFFEINE\CODEINE [Concomitant]
     Active Substance: ACETAMINOPHEN\CAFFEINE\CODEINE
     Indication: Product used for unknown indication
     Route: 048
  8. ACTEMRA [Concomitant]
     Active Substance: TOCILIZUMAB
     Indication: Rheumatoid arthritis
     Route: 042
  9. ACTEMRA [Concomitant]
     Active Substance: TOCILIZUMAB
     Route: 058
  10. ACTEMRA [Concomitant]
     Active Substance: TOCILIZUMAB
     Route: 048
  11. ACTEMRA [Concomitant]
     Active Substance: TOCILIZUMAB
     Route: 042
  12. ACTEMRA [Concomitant]
     Active Substance: TOCILIZUMAB
     Route: 042
  13. ACTEMRA [Concomitant]
     Active Substance: TOCILIZUMAB
     Route: 042
  14. ACTEMRA [Concomitant]
     Active Substance: TOCILIZUMAB
     Route: 042
  15. ADALIMUMAB [Concomitant]
     Active Substance: ADALIMUMAB
     Indication: Rheumatoid arthritis
     Dosage: SOLUTION SUBCUTANEOUS
  16. ADALIMUMAB [Concomitant]
     Active Substance: ADALIMUMAB
     Indication: Psoriatic arthropathy
     Dosage: SOLUTION SUBCUTANEOUS
     Route: 058
  17. ALENDRONATE SODIUM [Concomitant]
     Active Substance: ALENDRONATE SODIUM
     Indication: Rheumatoid arthritis
     Route: 058
  18. ALENDRONATE SODIUM [Concomitant]
     Active Substance: ALENDRONATE SODIUM
     Route: 048
  19. ALENDRONATE SODIUM [Concomitant]
     Active Substance: ALENDRONATE SODIUM
     Route: 016
  20. ALENDRONATE SODIUM\CHOLECALCIFEROL [Concomitant]
     Active Substance: ALENDRONATE SODIUM\CHOLECALCIFEROL
     Indication: Product used for unknown indication
     Route: 058
  21. ALENDRONIC ACID [Concomitant]
     Active Substance: ALENDRONIC ACID
     Indication: Rheumatoid arthritis
     Route: 048
  22. PREDNISONE [Concomitant]
     Active Substance: PREDNISONE
     Indication: Rheumatoid arthritis
     Route: 048
  23. PREDNISONE [Concomitant]
     Active Substance: PREDNISONE
     Indication: Condition aggravated
  24. ARAVA [Concomitant]
     Active Substance: LEFLUNOMIDE
     Indication: Rheumatoid arthritis
  25. ARAVA [Concomitant]
     Active Substance: LEFLUNOMIDE
     Route: 048
  26. ARAVA [Concomitant]
     Active Substance: LEFLUNOMIDE
  27. ARAVA [Concomitant]
     Active Substance: LEFLUNOMIDE
  28. ARAVA [Concomitant]
     Active Substance: LEFLUNOMIDE
     Route: 005
  29. VITAMIN C [Concomitant]
     Active Substance: ASCORBIC ACID
     Indication: Product used for unknown indication
  30. ACETAMINOPHEN\CAFFEINE\CODEINE PHOSPHATE [Concomitant]
     Active Substance: ACETAMINOPHEN\CAFFEINE\CODEINE PHOSPHATE
     Indication: Product used for unknown indication
     Route: 048
  31. ATIVAN [Concomitant]
     Active Substance: LORAZEPAM
     Indication: Rheumatoid arthritis
  32. AZATHIOPRINE [Concomitant]
     Active Substance: AZATHIOPRINE
     Indication: Rheumatoid arthritis
     Route: 058
  33. CAFFEINE [Concomitant]
     Active Substance: CAFFEINE
     Indication: Rheumatoid arthritis
  34. CAFFEINE CITRATE [Concomitant]
     Active Substance: CAFFEINE CITRATE
     Indication: Product used for unknown indication
     Route: 048
  35. CALCIUM [Concomitant]
     Active Substance: CALCIUM
     Indication: Product used for unknown indication
  36. CALCIUM CARBONATE [Concomitant]
     Active Substance: CALCIUM CARBONATE
     Indication: Product used for unknown indication
  37. CHOLECALCIFEROL [Concomitant]
     Active Substance: CHOLECALCIFEROL
     Indication: Product used for unknown indication
  38. CALCIUM GLUBIONATE [Concomitant]
     Active Substance: CALCIUM GLUBIONATE
     Indication: Product used for unknown indication
     Route: 016
  39. CALCIUM GLUBIONATE [Concomitant]
     Active Substance: CALCIUM GLUBIONATE
  40. CALCIUM LACTATE [Concomitant]
     Active Substance: CALCIUM LACTATE
     Indication: Product used for unknown indication
  41. CELEBREX [Concomitant]
     Active Substance: CELECOXIB
     Indication: Rheumatoid arthritis
     Route: 048
  42. CELEBREX [Concomitant]
     Active Substance: CELECOXIB
     Route: 048
  43. CELEBREX [Concomitant]
     Active Substance: CELECOXIB
     Route: 048
  44. CELECOXIB [Concomitant]
     Active Substance: CELECOXIB
     Indication: Rheumatoid arthritis
     Route: 048
  45. CELECOXIB [Concomitant]
     Active Substance: CELECOXIB
     Route: 048
  46. CELECOXIB [Concomitant]
     Active Substance: CELECOXIB
  47. CETIRIZINE [Concomitant]
     Active Substance: CETIRIZINE HYDROCHLORIDE
     Indication: Rheumatoid arthritis
     Route: 016
  48. CETIRIZINE [Concomitant]
     Active Substance: CETIRIZINE HYDROCHLORIDE
     Route: 048
  49. CHLORAPREP [Concomitant]
     Active Substance: CHLORHEXIDINE GLUCONATE\ISOPROPYL ALCOHOL
     Indication: Rheumatoid arthritis
     Route: 058
  50. CHLORAPREP [Concomitant]
     Active Substance: CHLORHEXIDINE GLUCONATE\ISOPROPYL ALCOHOL
  51. CHLORHEXIDINE [Concomitant]
     Active Substance: CHLORHEXIDINE
     Indication: Rheumatoid arthritis
     Route: 058
  52. CHLORHEXIDINE [Concomitant]
     Active Substance: CHLORHEXIDINE
  53. CHLORHEXIDINE [Concomitant]
     Active Substance: CHLORHEXIDINE
     Route: 061
  54. CHLORHEXIDINE [Concomitant]
     Active Substance: CHLORHEXIDINE
     Route: 048
  55. CHOLECALCIFEROL [Concomitant]
     Active Substance: CHOLECALCIFEROL
     Indication: Rheumatoid arthritis
  56. CIMZIA [Concomitant]
     Active Substance: CERTOLIZUMAB PEGOL
     Indication: Rheumatoid arthritis
     Route: 058
  57. CIMZIA [Concomitant]
     Active Substance: CERTOLIZUMAB PEGOL
     Indication: Psoriasis
     Route: 005
  58. CODEINE PHOSPHATE [Concomitant]
     Active Substance: CODEINE PHOSPHATE
     Indication: Rheumatoid arthritis
  59. COSENTYX [Concomitant]
     Active Substance: SECUKINUMAB
     Indication: Rheumatoid arthritis
     Route: 048
  60. COSENTYX [Concomitant]
     Active Substance: SECUKINUMAB
     Indication: Psoriatic arthropathy
     Route: 005
  61. DESOXIMETASONE [Concomitant]
     Active Substance: DESOXIMETASONE
     Indication: Rheumatoid arthritis
  62. DESOXIMETASONE [Concomitant]
     Active Substance: DESOXIMETASONE
  63. DESOXIMETASONE [Concomitant]
     Active Substance: DESOXIMETASONE
     Route: 048
  64. DESOXIMETASONE [Concomitant]
     Active Substance: DESOXIMETASONE
     Route: 048
  65. DESOXIMETASONE [Concomitant]
     Active Substance: DESOXIMETASONE
  66. DESOXIMETASONE [Concomitant]
     Active Substance: DESOXIMETASONE
     Route: 067
  67. DESOXIMETASONE [Concomitant]
     Active Substance: DESOXIMETASONE
     Route: 003
  68. DICLOFENAC POTASSIUM [Concomitant]
     Active Substance: DICLOFENAC POTASSIUM
     Indication: Rheumatoid arthritis
     Route: 048
  69. DICLOFENAC SODIUM [Concomitant]
     Active Substance: DICLOFENAC\DICLOFENAC SODIUM
     Indication: Rheumatoid arthritis
     Route: 058
  70. DICLOFENAC SODIUM [Concomitant]
     Active Substance: DICLOFENAC\DICLOFENAC SODIUM
  71. DICLOFENAC SODIUM [Concomitant]
     Active Substance: DICLOFENAC\DICLOFENAC SODIUM
  72. DIPHENHYDRAMINE [Concomitant]
     Active Substance: DIPHENHYDRAMINE
     Indication: Product used for unknown indication
  73. DOXYCYCLINE [Concomitant]
     Active Substance: DOXYCYCLINE\DOXYCYCLINE HYCLATE
     Indication: Rheumatoid arthritis
     Route: 005
  74. DOXYCYCLINE HYCLATE [Concomitant]
     Active Substance: DOXYCYCLINE HYCLATE
     Indication: Rheumatoid arthritis
     Route: 058
  75. EMEND [Concomitant]
     Active Substance: APREPITANT
     Indication: Product used for unknown indication
     Route: 048
  76. ENBREL [Concomitant]
     Active Substance: BENZYL ALCOHOL\ETANERCEPT
     Indication: Rheumatoid arthritis
  77. ENBREL [Concomitant]
     Active Substance: BENZYL ALCOHOL\ETANERCEPT
     Route: 058
  78. ENBREL [Concomitant]
     Active Substance: BENZYL ALCOHOL\ETANERCEPT
     Route: 058
  79. ENBREL [Concomitant]
     Active Substance: BENZYL ALCOHOL\ETANERCEPT
     Route: 058
  80. ENBREL [Concomitant]
     Active Substance: BENZYL ALCOHOL\ETANERCEPT
     Route: 058
  81. ENBREL [Concomitant]
     Active Substance: BENZYL ALCOHOL\ETANERCEPT
     Route: 058
  82. ERELZI [Concomitant]
     Active Substance: ETANERCEPT-SZZS
     Indication: Rheumatoid arthritis
     Route: 058
  83. ERGOCALCIFEROL [Concomitant]
     Active Substance: ERGOCALCIFEROL
     Indication: Rheumatoid arthritis
  84. ERYTHROMYCIN [Concomitant]
     Active Substance: ERYTHROMYCIN
     Indication: Product used for unknown indication
  85. ETANERCEPT [Concomitant]
     Active Substance: ETANERCEPT
     Indication: Rheumatoid arthritis
  86. ETHINYL ESTRADIOL\NORETHINDRONE [Concomitant]
     Active Substance: ETHINYL ESTRADIOL\NORETHINDRONE
     Indication: Rheumatoid arthritis
  87. FLUOROMETHOLONE [Concomitant]
     Active Substance: FLUOROMETHOLONE
     Indication: Product used for unknown indication
     Dosage: SUSPENSION OPHTHALMIC
  88. FOLIC ACID [Concomitant]
     Active Substance: FOLIC ACID
     Indication: Rheumatoid arthritis
     Route: 058
  89. FOLIC ACID [Concomitant]
     Active Substance: FOLIC ACID
  90. FOLIC ACID [Concomitant]
     Active Substance: FOLIC ACID
  91. FOLIC ACID [Concomitant]
     Active Substance: FOLIC ACID
  92. FOLIC ACID [Concomitant]
     Active Substance: FOLIC ACID
  93. FOLIC ACID [Concomitant]
     Active Substance: FOLIC ACID
  94. FOLIC ACID [Concomitant]
     Active Substance: FOLIC ACID
  95. FOLIC ACID [Concomitant]
     Active Substance: FOLIC ACID
  96. FOLIC ACID [Concomitant]
     Active Substance: FOLIC ACID
     Route: 048
  97. FOSAMAX [Concomitant]
     Active Substance: ALENDRONATE SODIUM
     Indication: Rheumatoid arthritis
     Route: 016
  98. FOSAMAX [Concomitant]
     Active Substance: ALENDRONATE SODIUM
     Route: 058
  99. FOSAMAX [Concomitant]
     Active Substance: ALENDRONATE SODIUM
     Route: 048
  100. FOSAMAX [Concomitant]
     Active Substance: ALENDRONATE SODIUM
  101. FOSAMAX [Concomitant]
     Active Substance: ALENDRONATE SODIUM
     Route: 005
  102. FOSAPREPITANT [Concomitant]
     Active Substance: FOSAPREPITANT
     Indication: Rheumatoid arthritis
     Dosage: POWDER FOR SOLUTION INTRAVENOUS
  103. GLUCOSAMINE [Concomitant]
     Active Substance: GLUCOSAMINE
     Indication: Rheumatoid arthritis
     Route: 048
  104. HUMIRA [Concomitant]
     Active Substance: ADALIMUMAB
     Indication: Rheumatoid arthritis
     Route: 058
  105. HUMIRA [Concomitant]
     Active Substance: ADALIMUMAB
     Route: 058
  106. HUMIRA [Concomitant]
     Active Substance: ADALIMUMAB
     Route: 058
  107. HUMIRA [Concomitant]
     Active Substance: ADALIMUMAB
     Route: 058
  108. HYALURONIDASE [Concomitant]
     Active Substance: HYALURONIDASE
     Indication: Product used for unknown indication
  109. HYDROCORTISONE PROBUTATE [Concomitant]
     Active Substance: HYDROCORTISONE PROBUTATE
     Indication: Product used for unknown indication
  110. HYDROCORTISONE ACETATE [Concomitant]
     Active Substance: HYDROCORTISONE ACETATE
     Indication: Rheumatoid arthritis
     Route: 048
  111. HYDROCORTISONE ACETATE [Concomitant]
     Active Substance: HYDROCORTISONE ACETATE
     Route: 058
  112. HYDROCORTISONE ACETATE [Concomitant]
     Active Substance: HYDROCORTISONE ACETATE
     Route: 048
  113. HYDROCORTISONE ACETATE [Concomitant]
     Active Substance: HYDROCORTISONE ACETATE
     Route: 003
  114. HYDROCORTISONE SODIUM SUCCINATE [Concomitant]
     Active Substance: HYDROCORTISONE SODIUM SUCCINATE
     Indication: Rheumatoid arthritis
     Dosage: POWDER FOR SOLUTION
  115. HYDROXYCHLOROQUINE [Concomitant]
     Active Substance: HYDROXYCHLOROQUINE
     Indication: Systemic lupus erythematosus
     Route: 005
  116. HYDROXYCHLOROQUINE [Concomitant]
     Active Substance: HYDROXYCHLOROQUINE
     Indication: Rheumatoid arthritis
  117. HYDROXYCHLOROQUINE SULFATE [Concomitant]
     Active Substance: HYDROXYCHLOROQUINE SULFATE
     Indication: Rheumatoid arthritis
     Route: 048
  118. HYDROXYCHLOROQUINE SULFATE [Concomitant]
     Active Substance: HYDROXYCHLOROQUINE SULFATE
     Route: 048
  119. HYDROXYCHLOROQUINE SULFATE [Concomitant]
     Active Substance: HYDROXYCHLOROQUINE SULFATE
     Route: 048
  120. HYDROXYCHLOROQUINE SULFATE [Concomitant]
     Active Substance: HYDROXYCHLOROQUINE SULFATE
     Route: 016
  121. IBUPROFEN [Concomitant]
     Active Substance: IBUPROFEN
     Indication: Product used for unknown indication
  122. INFLIXIMAB [Concomitant]
     Active Substance: INFLIXIMAB
     Indication: Rheumatoid arthritis
  123. ISOPROPYL ALCOHOL [Concomitant]
     Active Substance: ISOPROPYL ALCOHOL
     Indication: Product used for unknown indication
     Dosage: LIQUID TOPICAL
     Route: 061
  124. KEVZARA [Concomitant]
     Active Substance: SARILUMAB
     Indication: Rheumatoid arthritis
     Route: 003
  125. LANSOPRAZOLE [Concomitant]
     Active Substance: LANSOPRAZOLE
     Indication: Rheumatoid arthritis
     Dosage: CAPSULE, DELAYED RELEASE
     Route: 048
  126. LEFLUNOMIDE [Concomitant]
     Active Substance: LEFLUNOMIDE
     Indication: Rheumatoid arthritis
     Route: 048
  127. LISINOPRIL [Concomitant]
     Active Substance: LISINOPRIL
     Indication: Product used for unknown indication
     Route: 048
  128. FLUMETHASONE PIVALATE [Concomitant]
     Active Substance: FLUMETHASONE PIVALATE
     Indication: Rheumatoid arthritis
  129. CLIOQUINOL\FLUMETHASONE [Concomitant]
     Active Substance: CLIOQUINOL\FLUMETHASONE
     Indication: Product used for unknown indication
  130. LORAZEPAM [Concomitant]
     Active Substance: LORAZEPAM
     Indication: Rheumatoid arthritis
  131. LYRICA [Concomitant]
     Active Substance: PREGABALIN
     Indication: Product used for unknown indication
     Route: 048
  132. MAGNESIUM [Concomitant]
     Active Substance: MAGNESIUM
     Indication: Product used for unknown indication
     Route: 048
  133. MELOXICAM [Concomitant]
     Active Substance: MELOXICAM
     Indication: Product used for unknown indication
  134. MESALAMINE [Concomitant]
     Active Substance: MESALAMINE
     Indication: Crohn^s disease
  135. METHOTREXATE [Concomitant]
     Active Substance: METHOTREXATE
     Indication: Rheumatoid arthritis
     Route: 048
  136. METHOTREXATE [Concomitant]
     Active Substance: METHOTREXATE
     Indication: Psoriatic arthropathy
  137. METHOTREXATE [Concomitant]
     Active Substance: METHOTREXATE
     Route: 048
  138. METHOTREXATE [Concomitant]
     Active Substance: METHOTREXATE
  139. METHOTREXATE [Concomitant]
     Active Substance: METHOTREXATE
     Route: 048
  140. METHOTREXATE [Concomitant]
     Active Substance: METHOTREXATE
     Route: 052
  141. METHOTREXATE [Concomitant]
     Active Substance: METHOTREXATE
     Route: 016
  142. METHOTREXATE [Concomitant]
     Active Substance: METHOTREXATE
     Route: 048
  143. MORPHINE [Concomitant]
     Active Substance: MORPHINE
     Indication: Rheumatoid arthritis
     Route: 048
  144. MYCOPHENOLATE MOFETIL [Concomitant]
     Active Substance: MYCOPHENOLATE MOFETIL
     Indication: Rheumatoid arthritis
  145. NAPROXEN SODIUM [Concomitant]
     Active Substance: NAPROXEN\NAPROXEN SODIUM
     Indication: Rheumatoid arthritis
  146. NAPROXEN SODIUM [Concomitant]
     Active Substance: NAPROXEN\NAPROXEN SODIUM
  147. OTEZLA [Concomitant]
     Active Substance: APREMILAST
     Indication: Rheumatoid arthritis
     Route: 048
  148. OTEZLA [Concomitant]
     Active Substance: APREMILAST
  149. OTEZLA [Concomitant]
     Active Substance: APREMILAST
  150. OXYCODONE AND ACETAMINOPHEN [Concomitant]
     Active Substance: ACETAMINOPHEN\OXYCODONE HYDROCHLORIDE
     Indication: Rheumatoid arthritis
     Route: 058
  151. OXYCODONE AND ACETAMINOPHEN [Concomitant]
     Active Substance: ACETAMINOPHEN\OXYCODONE HYDROCHLORIDE
     Route: 048
  152. PANTOPRAZOLE SODIUM [Concomitant]
     Active Substance: PANTOPRAZOLE SODIUM
     Indication: Rheumatoid arthritis
     Route: 048
  153. PANTOPRAZOLE [Concomitant]
     Active Substance: PANTOPRAZOLE
     Indication: Rheumatoid arthritis
     Route: 016
  154. PANTOPRAZOLE [Concomitant]
     Active Substance: PANTOPRAZOLE
     Route: 048
  155. PANTOPRAZOLE SODIUM ANHYDROUS [Concomitant]
     Active Substance: PANTOPRAZOLE SODIUM ANHYDROUS
     Indication: Product used for unknown indication
  156. PARA-AMINOSALICYLIC ACID [Concomitant]
     Active Substance: AMINOSALICYLIC ACID
     Indication: Product used for unknown indication
  157. ACETAMINOPHEN\OXYCODONE HYDROCHLORIDE\OXYCODONE TEREPHTHALATE [Concomitant]
     Active Substance: ACETAMINOPHEN\OXYCODONE HYDROCHLORIDE\OXYCODONE TEREPHTHALATE
     Indication: Rheumatoid arthritis
     Route: 058
  158. ACETAMINOPHEN\OXYCODONE HYDROCHLORIDE\OXYCODONE TEREPHTHALATE [Concomitant]
     Active Substance: ACETAMINOPHEN\OXYCODONE HYDROCHLORIDE\OXYCODONE TEREPHTHALATE
     Route: 048
  159. PERIOGARD [Concomitant]
     Active Substance: CHLORHEXIDINE GLUCONATE
     Indication: Product used for unknown indication
     Dosage: SOLUTION BUCCAL
     Route: 002
  160. PHTHALYLSULFATHIAZOLE [Concomitant]
     Active Substance: PHTHALYLSULFATHIAZOLE
     Indication: Rheumatoid arthritis
     Route: 048
  161. PHTHALYLSULFATHIAZOLE [Concomitant]
     Active Substance: PHTHALYLSULFATHIAZOLE
     Route: 005
  162. PHTHALYLSULFATHIAZOLE [Concomitant]
     Active Substance: PHTHALYLSULFATHIAZOLE
     Route: 048
  163. PHTHALYLSULFATHIAZOLE [Concomitant]
     Active Substance: PHTHALYLSULFATHIAZOLE
     Route: 016
  164. PIROXICAM [Concomitant]
     Active Substance: PIROXICAM
     Indication: Product used for unknown indication
  165. HYDROXYCHLOROQUINE DIPHOSPHATE [Concomitant]
     Active Substance: HYDROXYCHLOROQUINE DIPHOSPHATE
     Indication: Rheumatoid arthritis
     Route: 005
  166. HYDROXYCHLOROQUINE DIPHOSPHATE [Concomitant]
     Active Substance: HYDROXYCHLOROQUINE DIPHOSPHATE
  167. PREDNISONE [Concomitant]
     Active Substance: PREDNISONE
     Indication: Rheumatoid arthritis
  168. PREDNISONE [Concomitant]
     Active Substance: PREDNISONE
     Indication: Condition aggravated
     Route: 048
  169. PREDNISONE [Concomitant]
     Active Substance: PREDNISONE
     Indication: Arthralgia
     Route: 048
  170. PREDNISONE [Concomitant]
     Active Substance: PREDNISONE
     Route: 048
  171. PREDNISONE [Concomitant]
     Active Substance: PREDNISONE
     Route: 048
  172. PREGABALIN [Concomitant]
     Active Substance: PREGABALIN
     Indication: Rheumatoid arthritis
  173. PREVACID [Concomitant]
     Active Substance: LANSOPRAZOLE
     Indication: Product used for unknown indication
     Route: 048
  174. PSEUDOEPHEDRINE [Concomitant]
     Active Substance: PSEUDOEPHEDRINE
     Indication: Rheumatoid arthritis
  175. PSEUDOEPHEDRINE [Concomitant]
     Active Substance: PSEUDOEPHEDRINE
  176. PSEUDOEPHEDRINE [Concomitant]
     Active Substance: PSEUDOEPHEDRINE
  177. PSEUDOEPHEDRINE [Concomitant]
     Active Substance: PSEUDOEPHEDRINE
  178. QUETIAPINE [Concomitant]
     Active Substance: QUETIAPINE
     Indication: Product used for unknown indication
  179. RAMIPRIL [Concomitant]
     Active Substance: RAMIPRIL
     Indication: Product used for unknown indication
     Route: 016
  180. CETIRIZINE HYDROCHLORIDE [Concomitant]
     Active Substance: CETIRIZINE HYDROCHLORIDE
     Indication: Rheumatoid arthritis
     Route: 048
  181. CETIRIZINE HYDROCHLORIDE [Concomitant]
     Active Substance: CETIRIZINE HYDROCHLORIDE
     Route: 048
  182. RITUXAN HYCELA [Concomitant]
     Active Substance: HYALURONIDASE (HUMAN RECOMBINANT)\RITUXIMAB
     Indication: Rheumatoid arthritis
     Route: 058
  183. RITUXIMAB [Concomitant]
     Active Substance: RITUXIMAB
     Indication: Rheumatoid arthritis
     Route: 016
  184. RITUXIMAB [Concomitant]
     Active Substance: RITUXIMAB
     Route: 042
  185. DIETARY SUPPLEMENT [Concomitant]
     Active Substance: DIETARY SUPPLEMENT
     Indication: Product used for unknown indication
  186. SULFASALAZINE [Concomitant]
     Active Substance: SULFASALAZINE
     Indication: Product used for unknown indication
  187. SULFASALAZINE [Concomitant]
     Active Substance: SULFASALAZINE
  188. ALBUTEROL SULFATE [Concomitant]
     Active Substance: ALBUTEROL SULFATE
     Indication: Product used for unknown indication
  189. SIMPONI [Concomitant]
     Active Substance: GOLIMUMAB
     Indication: Rheumatoid arthritis
     Dosage: SOLUTION SUBCUTANEOUS
     Route: 058
  190. SIMPONI [Concomitant]
     Active Substance: GOLIMUMAB
     Dosage: SOLUTION SUBCUTANEOUS
     Route: 052
  191. SIMPONI [Concomitant]
     Active Substance: GOLIMUMAB
     Dosage: SOLUTION SUBCUTANEOUS
     Route: 042
  192. STELARA [Concomitant]
     Active Substance: USTEKINUMAB
     Indication: Product used for unknown indication
     Dosage: SOLUTION SUBCUTANEOUS
     Route: 058
  193. SULFAMETHOXAZOLE AND TRIMETHOPRIM [Concomitant]
     Active Substance: SULFAMETHOXAZOLE\TRIMETHOPRIM
     Indication: Product used for unknown indication
  194. SULFASALAZINE [Concomitant]
     Active Substance: SULFASALAZINE
     Indication: Rheumatoid arthritis
     Route: 058
  195. SULFASALAZINE [Concomitant]
     Active Substance: SULFASALAZINE
     Route: 048
  196. SULFASALAZINE [Concomitant]
     Active Substance: SULFASALAZINE
     Route: 048
  197. SULFASALAZINE [Concomitant]
     Active Substance: SULFASALAZINE
     Route: 048
  198. SULFASALAZINE [Concomitant]
     Active Substance: SULFASALAZINE
     Route: 048
  199. SULFASALAZINE [Concomitant]
     Active Substance: SULFASALAZINE
  200. SULFASALAZINE [Concomitant]
     Active Substance: SULFASALAZINE
     Route: 048
  201. SULFASALAZINE [Concomitant]
     Active Substance: SULFASALAZINE
     Route: 048
  202. SULFASALAZINE [Concomitant]
     Active Substance: SULFASALAZINE
     Route: 048
  203. TOFACITINIB [Concomitant]
     Active Substance: TOFACITINIB
     Indication: Rheumatoid arthritis
  204. XELJANZ [Concomitant]
     Active Substance: TOFACITINIB CITRATE
     Indication: Rheumatoid arthritis
     Route: 048
  205. XELJANZ [Concomitant]
     Active Substance: TOFACITINIB CITRATE
  206. ZESTRIL [Concomitant]
     Active Substance: LISINOPRIL
     Indication: Product used for unknown indication
     Route: 048

REACTIONS (145)
  - Abdominal discomfort [Unknown]
  - Abdominal pain [Unknown]
  - Abdominal pain upper [Unknown]
  - Adjustment disorder with depressed mood [Unknown]
  - Alopecia [Unknown]
  - Amnesia [Unknown]
  - Anti-cyclic citrullinated peptide antibody positive [Unknown]
  - Anxiety [Unknown]
  - Arthralgia [Unknown]
  - Arthritis [Unknown]
  - Asthenia [Unknown]
  - Asthma [Unknown]
  - Autoimmune disorder [Unknown]
  - Blister [Unknown]
  - Blood cholesterol increased [Unknown]
  - Bone erosion [Unknown]
  - Breast cancer stage III [Unknown]
  - Bursitis [Unknown]
  - C-reactive protein abnormal [Unknown]
  - Chest pain [Unknown]
  - Colitis ulcerative [Unknown]
  - Condition aggravated [Unknown]
  - Confusional state [Unknown]
  - Contusion [Unknown]
  - Crohn^s disease [Unknown]
  - Decreased appetite [Unknown]
  - Deep vein thrombosis postoperative [Unknown]
  - Delirium [Unknown]
  - Depression [Unknown]
  - Diarrhoea [Unknown]
  - Discomfort [Unknown]
  - Dislocation of vertebra [Unknown]
  - Dizziness [Unknown]
  - Drug hypersensitivity [Unknown]
  - Dry mouth [Unknown]
  - Duodenal ulcer perforation [Unknown]
  - Dyspepsia [Unknown]
  - Dyspnoea [Unknown]
  - Ear infection [Unknown]
  - Exostosis [Unknown]
  - Facet joint syndrome [Unknown]
  - Fatigue [Unknown]
  - Feeling hot [Unknown]
  - Fibromyalgia [Unknown]
  - Folliculitis [Unknown]
  - Foot deformity [Unknown]
  - Frequent bowel movements [Unknown]
  - Gait disturbance [Unknown]
  - Gastrointestinal disorder [Unknown]
  - General physical health deterioration [Unknown]
  - Glossodynia [Unknown]
  - Grip strength [Unknown]
  - Grip strength decreased [Unknown]
  - Hand deformity [Unknown]
  - Headache [Unknown]
  - Helicobacter infection [Unknown]
  - Hepatic cirrhosis [Unknown]
  - Hepatic enzyme increased [Unknown]
  - Arthropathy [Unknown]
  - Hypercholesterolaemia [Unknown]
  - Hypersensitivity [Unknown]
  - Hypertension [Unknown]
  - Hypoaesthesia [Unknown]
  - Ill-defined disorder [Unknown]
  - Impaired healing [Unknown]
  - Infection [Unknown]
  - Inflammation [Unknown]
  - Infusion related reaction [Unknown]
  - Injury [Unknown]
  - Insomnia [Unknown]
  - Irritable bowel syndrome [Unknown]
  - Joint range of motion decreased [Unknown]
  - Joint swelling [Unknown]
  - Laboratory test abnormal [Unknown]
  - Laryngitis [Unknown]
  - Lip dry [Unknown]
  - Liver disorder [Unknown]
  - Liver injury [Unknown]
  - Loss of personal independence in daily activities [Unknown]
  - Lower limb fracture [Unknown]
  - Lower respiratory tract infection [Unknown]
  - Lung disorder [Unknown]
  - Lupus vulgaris [Unknown]
  - Lupus-like syndrome [Unknown]
  - Malaise [Unknown]
  - Memory impairment [Unknown]
  - Migraine [Unknown]
  - Mobility decreased [Unknown]
  - Muscle injury [Unknown]
  - Muscle spasms [Unknown]
  - Muscular weakness [Unknown]
  - Musculoskeletal pain [Unknown]
  - Musculoskeletal stiffness [Unknown]
  - Nasopharyngitis [Unknown]
  - Nausea [Unknown]
  - Night sweats [Unknown]
  - Obesity [Unknown]
  - Oedema [Unknown]
  - Oedema peripheral [Unknown]
  - Osteoarthritis [Unknown]
  - Osteoporosis [Unknown]
  - Pain [Unknown]
  - Pancreatitis [Unknown]
  - Paraesthesia [Unknown]
  - Pemphigus [Unknown]
  - Pericarditis [Unknown]
  - Peripheral swelling [Unknown]
  - Peripheral venous disease [Unknown]
  - Pneumonia [Unknown]
  - Pruritus [Unknown]
  - Psoriatic arthropathy [Unknown]
  - Pulmonary fibrosis [Unknown]
  - Pyrexia [Unknown]
  - Rash [Unknown]
  - Rectal haemorrhage [Unknown]
  - Retinitis [Unknown]
  - Rheumatic fever [Unknown]
  - Rheumatoid arthritis [Unknown]
  - Rheumatoid factor positive [Unknown]
  - Road traffic accident [Unknown]
  - Sciatica [Unknown]
  - Sinusitis [Unknown]
  - Sleep disorder due to a general medical condition [Unknown]
  - Sleep disorder due to general medical condition, insomnia type [Unknown]
  - Stomatitis [Unknown]
  - Swelling [Unknown]
  - Swollen joint count [Unknown]
  - Swollen joint count increased [Unknown]
  - Synovitis [Unknown]
  - Systemic lupus erythematosus [Unknown]
  - Type 2 diabetes mellitus [Unknown]
  - Urticaria [Unknown]
  - Visual impairment [Unknown]
  - Vomiting [Unknown]
  - Weight decreased [Unknown]
  - Weight fluctuation [Unknown]
  - Weight increased [Unknown]
  - Wheezing [Unknown]
  - White blood cell count increased [Unknown]
  - Wound [Unknown]
  - Wound infection [Unknown]
  - X-ray abnormal [Unknown]
  - Adverse event [Unknown]
  - Hospitalisation [Unknown]
  - Off label use [Unknown]
